FAERS Safety Report 6258189-8 (Version None)
Quarter: 2009Q3

REPORT INFORMATION
  Report Type: 
  Country: None (occurrence: None)
  Receive Date: 20090707
  Receipt Date: 20090701
  Transmission Date: 20100115
  Serious: Yes (Other)
  Sender: FDA-Public Use
  Company Number: FR-JNJFOC-20090700853

PATIENT
  Age: 58 Year
  Sex: Female

DRUGS (1)
  1. EPITOMAX [Suspect]
     Indication: ESSENTIAL TREMOR
     Route: 048

REACTIONS (2)
  - RETINAL DETACHMENT [None]
  - VISUAL ACUITY REDUCED [None]
